FAERS Safety Report 7056208-2 (Version None)
Quarter: 2010Q4

REPORT INFORMATION
  Report Type: 
  Country: None (occurrence: None)
  Receive Date: 20101018
  Receipt Date: 20100923
  Transmission Date: 20110411
  Serious: No
  Sender: FDA-Public Use
  Company Number: 2010-00850

PATIENT
  Age: 73 Year
  Sex: Male
  Weight: 79.3795 kg

DRUGS (4)
  1. ZICAM COLD REMEDY GEL SWABS [Suspect]
     Dosage: QID X 1 WEEK, APX 18 MONTHS AGO
  2. ATENOLOL [Concomitant]
  3. LISINOPRIL [Concomitant]
  4. SYMVASTATIN [Concomitant]

REACTIONS (1)
  - ANOSMIA [None]
